FAERS Safety Report 4594923-0 (Version None)
Quarter: 2005Q1

REPORT INFORMATION
  Report Type: 
  Country: None (occurrence: None)
  Receive Date: 20050225
  Receipt Date: 20050208
  Transmission Date: 20050727
  Serious: Yes (Hospitalization)
  Sender: FDA-Public Use
  Company Number: 2005BI003051

PATIENT
  Age: 44 Year
  Sex: Female
  Weight: 56.6996 kg

DRUGS (2)
  1. AVONEX [Suspect]
     Indication: MULTIPLE SCLEROSIS
     Dosage: 30 UG; QW; IM
     Route: 030
  2. AVONEX [Suspect]
     Indication: MULTIPLE SCLEROSIS
     Dosage: 30 UG; QW; IM
     Route: 030

REACTIONS (9)
  - ASTHMA [None]
  - FALL [None]
  - MOBILITY DECREASED [None]
  - MUSCLE SPASMS [None]
  - PERONEAL NERVE PALSY [None]
  - PYREXIA [None]
  - RESPIRATORY FUME INHALATION DISORDER [None]
  - SPEECH DISORDER [None]
  - WEIGHT INCREASED [None]
